FAERS Safety Report 12525824 (Version 1)
Quarter: 2016Q3

REPORT INFORMATION
  Report Type: Report from Study
  Country: US (occurrence: US)
  Receive Date: 20160705
  Receipt Date: 20160705
  Transmission Date: 20161109
  Serious: No
  Sender: FDA-Public Use
  Company Number: US-AMGEN-USASL2016085106

PATIENT
  Age: 58 Year

DRUGS (1)
  1. ENBREL [Suspect]
     Active Substance: ETANERCEPT
     Indication: PSORIATIC ARTHROPATHY
     Dosage: UNK
     Route: 065

REACTIONS (6)
  - Headache [Unknown]
  - Tendonitis [Unknown]
  - Fibromyalgia [Unknown]
  - Arthralgia [Not Recovered/Not Resolved]
  - Plantar fasciitis [Unknown]
  - Bursitis [Unknown]
